FAERS Safety Report 23656267 (Version 15)
Quarter: 2025Q2

REPORT INFORMATION
  Report Type: Report from Study
  Country: CA (occurrence: CA)
  Receive Date: 20240321
  Receipt Date: 20250603
  Transmission Date: 20250716
  Serious: Yes (Hospitalization, Other)
  Sender: NOVARTIS
  Company Number: CA-002147023-NVSC2024CA061045

PATIENT
  Age: 53 Year
  Sex: Male

DRUGS (4)
  1. COSENTYX [Suspect]
     Active Substance: SECUKINUMAB
     Indication: Psoriasis
     Route: 058
     Dates: start: 20221222
  2. COSENTYX [Suspect]
     Active Substance: SECUKINUMAB
     Indication: Hidradenitis
  3. DAPSONE [Concomitant]
     Active Substance: DAPSONE
     Indication: Product used for unknown indication
     Route: 065
  4. CORTISONE [Concomitant]
     Active Substance: CORTISONE
     Indication: Product used for unknown indication
     Route: 065

REACTIONS (29)
  - Post procedural complication [Unknown]
  - Sputum culture positive [Unknown]
  - Superinfection bacterial [Unknown]
  - Diabetic metabolic decompensation [Unknown]
  - Concomitant disease aggravated [Unknown]
  - Pulmonary oedema [Unknown]
  - Chronic obstructive pulmonary disease [Unknown]
  - Pneumonia [Recovered/Resolved]
  - Dyspnoea [Unknown]
  - Pneumonia [Unknown]
  - Discharge [Not Recovered/Not Resolved]
  - White blood cell count abnormal [Unknown]
  - Abscess [Unknown]
  - Asthenia [Recovering/Resolving]
  - Wound infection bacterial [Recovering/Resolving]
  - Nodule [Unknown]
  - Wound [Unknown]
  - Absent navel [Unknown]
  - Impaired healing [Unknown]
  - Skin mass [Unknown]
  - Wound haemorrhage [Unknown]
  - Hidradenitis [Not Recovered/Not Resolved]
  - Weight decreased [Unknown]
  - Incorrect dose administered [Unknown]
  - Varicose vein [Unknown]
  - Fatigue [Recovered/Resolved]
  - Varicose vein ruptured [Unknown]
  - Pain [Unknown]
  - Bleeding varicose vein [Unknown]

NARRATIVE: CASE EVENT DATE: 20240901
